FAERS Safety Report 6940189-3 (Version None)
Quarter: 2010Q3

REPORT INFORMATION
  Report Type: 
  Country: None (occurrence: None)
  Receive Date: 20100825
  Receipt Date: 20100816
  Transmission Date: 20110219
  Serious: Yes (Hospitalization)
  Sender: FDA-Public Use
  Company Number: JP-ELI_LILLY_AND_COMPANY-JP201008000447

PATIENT
  Age: 61 Year
  Sex: Male

DRUGS (3)
  1. HUMATROPE [Suspect]
     Indication: GROWTH HORMONE DEFICIENCY
     Dosage: UNK, UNK
     Route: 058
     Dates: start: 20060701
  2. HUMATROPE [Suspect]
     Dosage: 0.6 MG, DAILY (1/D)
     Route: 058
  3. HUMATROPE [Suspect]
     Dosage: 0.1-0.2 MG, DAILY (1/D)
     Route: 058

REACTIONS (2)
  - CHRONIC MYELOID LEUKAEMIA [None]
  - PARKINSON'S DISEASE [None]
